FAERS Safety Report 8082202-9 (Version None)
Quarter: 2012Q1

REPORT INFORMATION
  Report Type: 
  Country: None (occurrence: None)
  Receive Date: 20120127
  Receipt Date: 20110202
  Transmission Date: 20120608
  Serious: No
  Sender: FDA-Public Use
  Company Number: US-ABBOTT-11P-163-0702073-00

PATIENT
  Sex: Female
  Weight: 83.99 kg

DRUGS (2)
  1. UNKNOWN MEDICATION [Concomitant]
     Indication: CROHN'S DISEASE
     Route: 048
  2. HUMIRA [Suspect]
     Indication: CROHN'S DISEASE
     Route: 058
     Dates: start: 20100501

REACTIONS (3)
  - INJECTION SITE PAIN [None]
  - MUSCULAR WEAKNESS [None]
  - DIZZINESS [None]
